FAERS Safety Report 23550088 (Version 1)
Quarter: 2024Q1

REPORT INFORMATION
  Report Type: Spontaneous
  Country: US (occurrence: None)
  Receive Date: 20240220
  Receipt Date: 20240220
  Transmission Date: 20240410
  Serious: Yes (Other)
  Sender: FDA-Public Use
  Company Number: None

PATIENT
  Age: 52 Year
  Sex: Female
  Weight: 66.6 kg

DRUGS (11)
  1. CHLORHEXIDINE GLUCONATE [Suspect]
     Active Substance: CHLORHEXIDINE GLUCONATE
     Indication: Arterial catheterisation
     Dosage: OTHER FREQUENCY : ONCE;?
     Route: 061
     Dates: start: 20240214, end: 20240214
  2. CHLORHEXIDINE GLUCONATE [Suspect]
     Active Substance: CHLORHEXIDINE GLUCONATE
     Indication: Infection prophylaxis
  3. LEVOTHYROXINE [Concomitant]
     Active Substance: LEVOTHYROXINE\LEVOTHYROXINE SODIUM
  4. LANSOPRAZOLE [Concomitant]
     Active Substance: LANSOPRAZOLE
  5. Tambacor [Concomitant]
  6. AMLODIPINE [Concomitant]
     Active Substance: AMLODIPINE BESYLATE
  7. ZETIA [Concomitant]
     Active Substance: EZETIMIBE
  8. ROSUVASTATIN [Concomitant]
     Active Substance: ROSUVASTATIN
  9. TOPROL XL [Concomitant]
     Active Substance: METOPROLOL SUCCINATE
  10. ELIQUIS [Concomitant]
     Active Substance: APIXABAN
  11. ASPIRIN [Concomitant]
     Active Substance: ASPIRIN

REACTIONS (8)
  - Rash pruritic [None]
  - Rash papular [None]
  - Urticaria [None]
  - Rash erythematous [None]
  - Blister [None]
  - Application site rash [None]
  - Post procedural complication [None]
  - Skin reaction [None]

NARRATIVE: CASE EVENT DATE: 20240215
